FAERS Safety Report 18186446 (Version 1)
Quarter: 2020Q3

REPORT INFORMATION
  Report Type: Spontaneous
  Country: US (occurrence: US)
  Receive Date: 20200824
  Receipt Date: 20200824
  Transmission Date: 20201103
  Serious: Yes (Other)
  Sender: FDA-Public Use
  Company Number: US-STRIDES ARCOLAB LIMITED-2020SP009575

PATIENT
  Sex: Male

DRUGS (14)
  1. PRAMIPEXOLE DIHYDROCHLORIDE. [Suspect]
     Active Substance: PRAMIPEXOLE DIHYDROCHLORIDE
     Indication: BRADYKINESIA
     Dosage: 1.5 MILLIGRAM PER DAY (REINTRODUCED)
     Route: 065
  2. DESMOPRESSIN [Concomitant]
     Active Substance: DESMOPRESSIN
     Indication: EPISTAXIS
     Dosage: UNK
     Route: 065
  3. LEVODOPA/CARBIDOPA [Concomitant]
     Active Substance: CARBIDOPA\LEVODOPA
     Indication: DYSTONIA
     Dosage: 20?30 TABLETS OF LEVODOPA/CARBIDOPA
     Route: 048
  4. LEVODOPA/CARBIDOPA [Concomitant]
     Active Substance: CARBIDOPA\LEVODOPA
     Indication: MUSCLE RIGIDITY
     Dosage: 1 DOSAGE FORM, TID (LEVODOPA 100MG/CARBIDOPA 25MG)
     Route: 048
  5. LEVODOPA/CARBIDOPA [Concomitant]
     Active Substance: CARBIDOPA\LEVODOPA
     Indication: DYSARTHRIA
     Dosage: 1.5 DOSAGE FORM, TID (LEVODOPA 100MG/CARBIDOPA 25MG)
     Route: 048
  6. PRAMIPEXOLE DIHYDROCHLORIDE. [Suspect]
     Active Substance: PRAMIPEXOLE DIHYDROCHLORIDE
     Indication: DYSARTHRIA
     Dosage: 0.5 MILLIGRAM, TID
     Route: 065
  7. AMANTADINE HYDROCHLORIDE. [Suspect]
     Active Substance: AMANTADINE HYDROCHLORIDE
     Indication: DYSARTHRIA
     Dosage: UNK
     Route: 065
  8. LEVODOPA/CARBIDOPA [Concomitant]
     Active Substance: CARBIDOPA\LEVODOPA
     Indication: BRADYKINESIA
  9. TRIHEXYPHENIDYL [Concomitant]
     Active Substance: TRIHEXYPHENIDYL
     Indication: BRADYKINESIA
     Dosage: UNK
     Route: 065
  10. TRIHEXYPHENIDYL [Concomitant]
     Active Substance: TRIHEXYPHENIDYL
     Indication: DYSARTHRIA
  11. TRIHEXYPHENIDYL [Concomitant]
     Active Substance: TRIHEXYPHENIDYL
     Indication: DYSTONIA
  12. AMANTADINE HYDROCHLORIDE. [Suspect]
     Active Substance: AMANTADINE HYDROCHLORIDE
     Indication: DYSTONIA
  13. PRAMIPEXOLE DIHYDROCHLORIDE. [Suspect]
     Active Substance: PRAMIPEXOLE DIHYDROCHLORIDE
     Indication: DYSTONIA
     Dosage: 1 MILLIGRAM, TID
     Route: 065
  14. AMANTADINE HYDROCHLORIDE. [Suspect]
     Active Substance: AMANTADINE HYDROCHLORIDE
     Indication: BRADYKINESIA

REACTIONS (6)
  - Parkinsonism [Unknown]
  - Dysarthria [Recovered/Resolved]
  - Compulsive shopping [Recovered/Resolved]
  - Therapy partial responder [Unknown]
  - Disinhibition [Recovered/Resolved]
  - Rebound effect [Unknown]
